FAERS Safety Report 5309277-1 (Version None)
Quarter: 2007Q2

REPORT INFORMATION
  Report Type: 
  Country: None (occurrence: None)
  Receive Date: 20070424
  Receipt Date: 20070424
  Transmission Date: 20071010
  Serious: No
  Sender: FDA-Public Use
  Company Number: None

PATIENT
  Age: 36 Year
  Sex: Male

DRUGS (2)
  1. VANCOMYCIN [Suspect]
     Indication: ABSCESS
     Dosage: 1000 MG IV
     Route: 042
     Dates: start: 20070202, end: 20070202
  2. VANCOMYCIN [Suspect]
     Indication: CELLULITIS
     Dosage: 1000 MG IV
     Route: 042
     Dates: start: 20070202, end: 20070202

REACTIONS (3)
  - ADVERSE DRUG REACTION [None]
  - RASH [None]
  - RED MAN SYNDROME [None]
